FAERS Safety Report 8476508-9 (Version None)
Quarter: 2012Q2

REPORT INFORMATION
  Report Type: 
  Country: None (occurrence: None)
  Receive Date: 20120628
  Receipt Date: 20120622
  Transmission Date: 20120825
  Serious: Yes (Hospitalization)
  Sender: FDA-Public Use
  Company Number: GR-JNJFOC-20120611553

PATIENT
  Sex: Male
  Weight: 64 kg

DRUGS (4)
  1. PALIPERIDONE PALMITATE [Suspect]
     Indication: SCHIZOPHRENIA
     Dates: start: 20111229
  2. LIPITOR [Concomitant]
     Indication: HYPERLIPIDAEMIA
     Dates: start: 20090513
  3. TOPIRAMATE [Concomitant]
     Indication: IMPULSIVE BEHAVIOUR
     Dates: start: 20120126
  4. PALIPERIDONE PALMITATE [Suspect]
     Dates: start: 20120608

REACTIONS (1)
  - SCHIZOPHRENIA [None]
